FAERS Safety Report 4748102-4 (Version None)
Quarter: 2005Q3

REPORT INFORMATION
  Report Type: 
  Country: None (occurrence: None)
  Receive Date: 20050818
  Receipt Date: 20050711
  Transmission Date: 20060218
  Serious: Yes (Hospitalization)
  Sender: FDA-Public Use
  Company Number: US-MERCK-0507USA01505

PATIENT
  Age: 43 Year
  Sex: Female
  Weight: 59 kg

DRUGS (6)
  1. VIOXX [Suspect]
     Indication: RHEUMATOID ARTHRITIS
     Route: 048
     Dates: start: 20000913, end: 20030722
  2. METHOTREXATE [Concomitant]
     Route: 065
  3. FOLIC ACID [Concomitant]
     Route: 065
  4. SYNTHROID [Concomitant]
     Route: 065
     Dates: start: 20000101
  5. ARAVA [Concomitant]
     Route: 065
  6. LEUCOVORIN CALCIUM [Concomitant]
     Route: 065

REACTIONS (2)
  - BACK DISORDER [None]
  - CEREBROVASCULAR ACCIDENT [None]
